FAERS Safety Report 17492851 (Version 1)
Quarter: 2020Q1

REPORT INFORMATION
  Report Type: Report from Study
  Country: US (occurrence: US)
  Receive Date: 20200304
  Receipt Date: 20200304
  Transmission Date: 20200409
  Serious: No
  Sender: FDA-Public Use
  Company Number: NVSC2020US061295

PATIENT
  Sex: Female

DRUGS (1)
  1. ENTRESTO [Suspect]
     Active Substance: SACUBITRIL\VALSARTAN
     Indication: CARDIAC FAILURE CONGESTIVE
     Dosage: 0.5 DF, BID (HALF IN THE AM AND HALF IN PM)
     Route: 048
     Dates: start: 201901

REACTIONS (4)
  - Wrong technique in product usage process [Unknown]
  - Blood pressure decreased [Unknown]
  - Seasonal allergy [Unknown]
  - Cough [Unknown]
